FAERS Safety Report 18448029 (Version 2)
Quarter: 2021Q1

REPORT INFORMATION
  Report Type: Spontaneous
  Country: DE (occurrence: DE)
  Receive Date: 20201101
  Receipt Date: 20210211
  Transmission Date: 20210419
  Serious: Yes (Other)
  Sender: FDA-Public Use
  Company Number: DE-ROCHE-2703591

PATIENT
  Sex: Male

DRUGS (4)
  1. FOLFOX 6 [Concomitant]
     Active Substance: FLUOROURACIL\LEUCOVORIN CALCIUM\OXALIPLATIN
     Indication: GASTROOESOPHAGEAL CANCER
  2. 5?FLUOROURACIL [Suspect]
     Active Substance: FLUOROURACIL
     Indication: GASTROOESOPHAGEAL CANCER
     Route: 065
  3. CISPLATIN. [Suspect]
     Active Substance: CISPLATIN
     Indication: GASTROOESOPHAGEAL CANCER
     Route: 065
  4. HERCEPTIN [Suspect]
     Active Substance: TRASTUZUMAB
     Indication: GASTROOESOPHAGEAL CANCER
     Dosage: IN COMBINATION WITH FOLFOX 6
     Route: 065

REACTIONS (3)
  - Nephropathy toxic [Unknown]
  - Off label use [Unknown]
  - Intentional product use issue [Unknown]
